FAERS Safety Report 13917725 (Version 6)
Quarter: 2018Q2

REPORT INFORMATION
  Report Type: Spontaneous
  Country: US (occurrence: US)
  Receive Date: 20170829
  Receipt Date: 20180620
  Transmission Date: 20180711
  Serious: Yes (Other)
  Sender: FDA-Public Use
  Company Number: US-CELGENEUS-USA-20170605148

PATIENT
  Age: 50 Year
  Sex: Female

DRUGS (5)
  1. THALOMID [Suspect]
     Active Substance: THALIDOMIDE
     Dosage: 200 - 400 MG
     Route: 048
     Dates: start: 20131206
  2. THALOMID [Suspect]
     Active Substance: THALIDOMIDE
     Indication: MALIGNANT MELANOMA
     Dosage: 200 MILLIGRAM
     Route: 048
     Dates: start: 200302
  3. THALOMID [Suspect]
     Active Substance: THALIDOMIDE
     Indication: PLASMA CELL MYELOMA
     Dosage: 250-500 MG
     Route: 048
     Dates: start: 200303
  4. THALOMID [Suspect]
     Active Substance: THALIDOMIDE
     Dosage: 200-400 MG
     Route: 048
     Dates: start: 200402
  5. THALOMID [Suspect]
     Active Substance: THALIDOMIDE
     Dosage: 200 MILLIGRAM
     Route: 048
     Dates: start: 201408

REACTIONS (3)
  - Fatigue [Unknown]
  - Somnolence [Not Recovered/Not Resolved]
  - Somnolence [Not Recovered/Not Resolved]

NARRATIVE: CASE EVENT DATE: 20130612
